FAERS Safety Report 16001277 (Version 1)
Quarter: 2019Q1

REPORT INFORMATION
  Report Type: Spontaneous
  Country: US (occurrence: US)
  Receive Date: 20190224
  Receipt Date: 20190224
  Transmission Date: 20190418
  Serious: Yes (Life-Threatening, Hospitalization)
  Sender: FDA-Public Use
  Company Number: None

PATIENT
  Age: 31 Year
  Sex: Male
  Weight: 94.5 kg

DRUGS (8)
  1. ESOMEPRAZOLE. [Concomitant]
     Active Substance: ESOMEPRAZOLE MAGNESIUM
  2. NITROFURANTOIN MONO [Concomitant]
     Active Substance: NITROFURANTOIN
  3. LEVOCETIRIZINE [Concomitant]
     Active Substance: LEVOCETIRIZINE
  4. TIZANIDINE. [Concomitant]
     Active Substance: TIZANIDINE
  5. AMPHETAMINE/DEXTROAMPHETAMINE [Concomitant]
     Active Substance: AMPHETAMINE\DEXTROAMPHETAMINE
  6. BUPROPION SR 100 MG TABLETS (12H) [Suspect]
     Active Substance: BUPROPION HYDROCHLORIDE
     Indication: BIPOLAR DISORDER
     Dosage: ?          QUANTITY:15 TABLET(S);?
     Route: 048
     Dates: start: 20190216, end: 20190221
  7. FLUOXETINE [Concomitant]
     Active Substance: FLUOXETINE HYDROCHLORIDE
  8. MAGNESIUM [Concomitant]
     Active Substance: MAGNESIUM

REACTIONS (6)
  - Balance disorder [None]
  - Visual impairment [None]
  - Product substitution issue [None]
  - Speech disorder [None]
  - Tachycardia [None]
  - Mobility decreased [None]

NARRATIVE: CASE EVENT DATE: 20190222
